FAERS Safety Report 20544453 (Version 2)
Quarter: 2022Q1

REPORT INFORMATION
  Report Type: Spontaneous
  Country: US (occurrence: US)
  Receive Date: 20220303
  Receipt Date: 20220328
  Transmission Date: 20220423
  Serious: Yes (Death, Life-Threatening, Hospitalization, Other)
  Sender: FDA-Public Use
  Company Number: US-SA-2022SA067900

PATIENT
  Age: 70 Year
  Sex: Male

DRUGS (4)
  1. METHYLPREDNISOLONE [Suspect]
     Active Substance: METHYLPREDNISOLONE
     Indication: Rheumatic disorder
     Dosage: 60 MG, QD
     Route: 042
  2. METHYLPREDNISOLONE [Suspect]
     Active Substance: METHYLPREDNISOLONE
     Indication: Oncologic complication
  3. PREDNISONE [Suspect]
     Active Substance: PREDNISONE
     Dosage: 40 MG, QD
     Route: 048
  4. HYDROCORTISONE [Suspect]
     Active Substance: HYDROCORTISONE
     Dosage: UNK
     Route: 042

REACTIONS (13)
  - Clostridium difficile colitis [Fatal]
  - Diarrhoea [Fatal]
  - Ileus [Fatal]
  - Colitis [Fatal]
  - Escherichia urinary tract infection [Fatal]
  - Hypophagia [Fatal]
  - Mental status changes [Fatal]
  - Hypotension [Fatal]
  - Escherichia sepsis [Fatal]
  - Strongyloidiasis [Fatal]
  - Upper gastrointestinal haemorrhage [Fatal]
  - Multiple organ dysfunction syndrome [Fatal]
  - Respiratory failure [Fatal]
